FAERS Safety Report 14620039 (Version 1)
Quarter: 2018Q1

REPORT INFORMATION
  Report Type: Spontaneous
  Country: KR (occurrence: KR)
  Receive Date: 20180309
  Receipt Date: 20180309
  Transmission Date: 20180509
  Serious: Yes (Other)
  Sender: FDA-Public Use
  Company Number: KR-PFIZER INC-2018096525

PATIENT
  Age: 86 Year
  Sex: Female

DRUGS (3)
  1. ATACAND [Concomitant]
     Active Substance: CANDESARTAN CILEXETIL
     Dosage: UNK
  2. CORDARONE [Suspect]
     Active Substance: AMIODARONE HYDROCHLORIDE
     Indication: ARRHYTHMIA
     Dosage: 200 MG, 2X/DAY
     Route: 048
     Dates: start: 20180223
  3. CONCOR [Concomitant]
     Active Substance: BISOPROLOL FUMARATE
     Dosage: UNK

REACTIONS (4)
  - Cold sweat [Not Recovered/Not Resolved]
  - Dyspnoea [Not Recovered/Not Resolved]
  - Micturition disorder [Not Recovered/Not Resolved]
  - Palpitations [Not Recovered/Not Resolved]

NARRATIVE: CASE EVENT DATE: 201802
